FAERS Safety Report 14692396 (Version 2)
Quarter: 2018Q1

REPORT INFORMATION
  Report Type: Spontaneous
  Country: US (occurrence: US)
  Receive Date: 20180329
  Receipt Date: 20180331
  Transmission Date: 20180509
  Serious: No
  Sender: FDA-Public Use
  Company Number: US-TEVA-2018-US-872673

PATIENT
  Sex: Male

DRUGS (1)
  1. NICOTINE COATED MINT [Suspect]
     Active Substance: NICOTINE

REACTIONS (3)
  - Product odour abnormal [Unknown]
  - Drug ineffective [Unknown]
  - Product taste abnormal [Unknown]
